FAERS Safety Report 9685502 (Version 3)
Quarter: 2013Q4

REPORT INFORMATION
  Report Type: Report from Study
  Country: GB (occurrence: GB)
  Receive Date: 20131113
  Receipt Date: 20131219
  Transmission Date: 20140711
  Serious: Yes (Hospitalization, Other)
  Sender: FDA-Public Use
  Company Number: GB-MPIJNJ-2012-04487

PATIENT
  Sex: 0

DRUGS (18)
  1. VELCADE [Suspect]
     Indication: DIFFUSE LARGE B-CELL LYMPHOMA
     Dosage: 2.4 MG, UNK
     Route: 065
     Dates: start: 20120712, end: 20120719
  2. RITUXIMAB [Suspect]
     Indication: DIFFUSE LARGE B-CELL LYMPHOMA
     Dosage: 700 MG, UNK
     Route: 065
     Dates: start: 20120619, end: 20130712
  3. CYCLOPHOSPHAMIDE [Suspect]
     Indication: DIFFUSE LARGE B-CELL LYMPHOMA
     Dosage: 1400 MG, UNK
     Route: 065
     Dates: start: 20120622, end: 20130712
  4. VINCRISTINE [Suspect]
     Indication: DIFFUSE LARGE B-CELL LYMPHOMA
     Dosage: 2 MG, UNK
     Route: 065
     Dates: start: 20120622, end: 20120712
  5. DOXORUBICIN [Suspect]
     Indication: DIFFUSE LARGE B-CELL LYMPHOMA
     Dosage: 92 MG, UNK
     Route: 065
     Dates: start: 20130622, end: 20130712
  6. PREDNISOLONE [Suspect]
     Indication: DIFFUSE LARGE B-CELL LYMPHOMA
     Dosage: 100 MG, UNK
     Route: 065
     Dates: start: 20120622, end: 20120716
  7. LISINOPRIL [Concomitant]
     Dosage: 20 MG, UNK
     Route: 048
  8. AMLODIPINE [Concomitant]
     Dosage: 5 MG, UNK
     Route: 048
  9. DOXAZOSIN [Concomitant]
     Dosage: 4 MG, UNK
     Route: 048
  10. METFORMIN [Concomitant]
     Dosage: 500 MG, UNK
     Route: 048
  11. FILGRASTINE [Concomitant]
     Dosage: 300 ?G, UNK
     Route: 058
     Dates: start: 20120710, end: 20120712
  12. MOVICOL                            /01625101/ [Concomitant]
     Dosage: UNK
     Route: 048
     Dates: start: 20120626, end: 20120627
  13. PARACETAMOL [Concomitant]
     Dosage: 1 G, UNK
     Route: 048
     Dates: start: 20120620, end: 20120625
  14. TRAMADOL [Concomitant]
     Dosage: 100 MG, UNK
     Route: 048
     Dates: start: 20120620, end: 20120622
  15. OXYNORM [Concomitant]
     Dosage: 1.25 MG, UNK
     Route: 048
     Dates: start: 20120702, end: 20120704
  16. OXYCODON [Concomitant]
     Dosage: 2.25 MG, UNK
     Route: 048
     Dates: start: 20120704, end: 20120704
  17. NYSTATIN [Concomitant]
     Dosage: UNK
     Route: 048
     Dates: start: 201207, end: 201207
  18. DOCUSATE SODIUM [Concomitant]
     Dosage: 200 MG, UNK
     Route: 048
     Dates: start: 201206

REACTIONS (1)
  - Lower respiratory tract infection [Recovered/Resolved]
